FAERS Safety Report 7237215-3 (Version None)
Quarter: 2011Q1

REPORT INFORMATION
  Report Type: 
  Country: None (occurrence: None)
  Receive Date: 20110121
  Receipt Date: 20101115
  Transmission Date: 20110831
  Serious: Yes (Hospitalization, Other)
  Sender: FDA-Public Use
  Company Number: FR-CELGENEUS-056-21880-08110750

PATIENT
  Sex: Male

DRUGS (9)
  1. OFLOCET [Concomitant]
     Route: 065
     Dates: start: 20081001
  2. REVLIMID [Suspect]
     Indication: MULTIPLE MYELOMA
     Route: 048
     Dates: start: 20060727, end: 20081003
  3. RIFAMPICIN [Concomitant]
     Route: 065
  4. AUGMENTIN '125' [Concomitant]
     Route: 065
     Dates: start: 20081101
  5. REVLIMID [Suspect]
     Route: 048
     Dates: start: 20080801
  6. PYOSTACINE [Concomitant]
     Route: 065
  7. REVLIMID [Suspect]
     Route: 048
     Dates: start: 20060401
  8. AUGMENTIN '125' [Concomitant]
     Route: 065
     Dates: start: 20081001
  9. REVLIMID [Suspect]
     Route: 048
     Dates: end: 20080901

REACTIONS (1)
  - HODGKIN'S DISEASE [None]
